FAERS Safety Report 17853973 (Version 1)
Quarter: 2020Q2

REPORT INFORMATION
  Report Type: Report from Study
  Country: ES (occurrence: ES)
  Receive Date: 20200603
  Receipt Date: 20200603
  Transmission Date: 20200714
  Serious: Yes (Hospitalization)
  Sender: FDA-Public Use
  Company Number: ES-TEVA-2020-ES-1242985

PATIENT
  Age: 91 Year
  Sex: Female

DRUGS (5)
  1. DENOSUMAB (8418A) [Concomitant]
     Active Substance: DENOSUMAB
     Indication: OSTEOPOROSIS
     Dosage: 120 MG
     Route: 058
     Dates: start: 20130627, end: 20191107
  2. CALCIFEDIOL (547A) [Interacting]
     Active Substance: CALCIFEDIOL
     Indication: OSTEOPOROSIS
     Dosage: 266 MCG
     Route: 048
     Dates: start: 20140214, end: 20191107
  3. SERTRALINA (2537A) [Concomitant]
     Active Substance: SERTRALINE HYDROCHLORIDE
     Indication: DEPRESSION
     Dosage: 50 MG
     Route: 048
     Dates: start: 20131111
  4. ENALAPRIL + HIDROCLOROTIAZIDA [Suspect]
     Active Substance: ENALAPRIL MALEATE\HYDROCHLOROTHIAZIDE
     Indication: ESSENTIAL HYPERTENSION
     Dosage: 12.5 MG
     Route: 048
     Dates: start: 2019, end: 20191107
  5. ACETILSALICILICO ACIDO (176A) [Concomitant]
     Active Substance: ASPIRIN
     Indication: PROPHYLAXIS
     Dosage: 150 MG
     Route: 048
     Dates: start: 20120109

REACTIONS (2)
  - Hypercalcaemia [Recovered/Resolved]
  - Drug interaction [Unknown]

NARRATIVE: CASE EVENT DATE: 20191107
